APPROVED DRUG PRODUCT: ONA-MAST
Active Ingredient: PHENTERMINE HYDROCHLORIDE
Strength: 30MG
Dosage Form/Route: CAPSULE;ORAL
Application: A086511 | Product #001
Applicant: MM MAST AND CO
Approved: Approved Prior to Jan 1, 1982 | RLD: No | RS: No | Type: DISCN